FAERS Safety Report 6999230-4 (Version None)
Quarter: 2010Q3

REPORT INFORMATION
  Report Type: 
  Country: None (occurrence: None)
  Receive Date: 20100920
  Receipt Date: 20091005
  Transmission Date: 20110219
  Serious: Yes (Other)
  Sender: FDA-Public Use
  Company Number: US-ASTRAZENECA-2009SE17999

PATIENT
  Age: 58 Year
  Sex: Female
  Weight: 48.5 kg

DRUGS (5)
  1. SEROQUEL [Suspect]
     Indication: INSOMNIA
     Route: 048
  2. SURMONTIL [Suspect]
     Indication: INSOMNIA
  3. SURMONTIL [Suspect]
     Indication: DEPRESSION
  4. TEMAZEPAM [Concomitant]
  5. KLONOPIN [Concomitant]

REACTIONS (8)
  - CONFUSIONAL STATE [None]
  - DEPRESSION [None]
  - FEELING ABNORMAL [None]
  - INSOMNIA [None]
  - MEMORY IMPAIRMENT [None]
  - SUICIDAL IDEATION [None]
  - SURGERY [None]
  - TYPE 2 DIABETES MELLITUS [None]
